FAERS Safety Report 6405361-X (Version None)
Quarter: 2009Q4

REPORT INFORMATION
  Report Type: 
  Country: None (occurrence: None)
  Receive Date: 20091019
  Receipt Date: 20090930
  Transmission Date: 20100525
  Serious: No
  Sender: FDA-Public Use
  Company Number: US-AVENTIS-200918815US

PATIENT
  Sex: Male

DRUGS (2)
  1. LANTUS [Suspect]
     Indication: DIABETES MELLITUS
     Dosage: DOSE: SLIDING SCALE
     Route: 058
     Dates: start: 20090901
  2. OPTICLIK (INSULIN INJECTION PEN) [Suspect]
     Indication: DIABETES MELLITUS
     Dates: start: 20090901, end: 20090901

REACTIONS (2)
  - DIABETES MELLITUS INADEQUATE CONTROL [None]
  - INJURY ASSOCIATED WITH DEVICE [None]
